APPROVED DRUG PRODUCT: ACETAMINOPHEN
Active Ingredient: ACETAMINOPHEN
Strength: 650MG
Dosage Form/Route: SUPPOSITORY;RECTAL
Application: A070608 | Product #001
Applicant: PERRIGO NEW YORK INC
Approved: Dec 1, 1986 | RLD: No | RS: No | Type: OTC